FAERS Safety Report 13188744 (Version 1)
Quarter: 2017Q1

REPORT INFORMATION
  Report Type: Report from Study
  Country: US (occurrence: US)
  Receive Date: 20170206
  Receipt Date: 20170206
  Transmission Date: 20170428
  Serious: Yes (Other)
  Sender: FDA-Public Use
  Company Number: US-CORCEPT THERAPEUTICS INC.-US-2017CRT000055

PATIENT

DRUGS (1)
  1. KORLYM [Suspect]
     Active Substance: MIFEPRISTONE
     Indication: ECTOPIC ACTH SYNDROME
     Dosage: 600 MG, QD
     Route: 048
     Dates: start: 20160201, end: 20170118

REACTIONS (1)
  - Mediastinal mass [Recovered/Resolved]
